FAERS Safety Report 26198831 (Version 1)
Quarter: 2025Q4

REPORT INFORMATION
  Report Type: Spontaneous
  Country: EU (occurrence: EU)
  Receive Date: 20251225
  Receipt Date: 20251225
  Transmission Date: 20260117
  Serious: Yes (Hospitalization)
  Sender: AUROBINDO
  Company Number: EU-LRB-01102905

PATIENT
  Age: 68 Year
  Sex: Male
  Weight: 93.7 kg

DRUGS (11)
  1. AMIODARONE [Suspect]
     Active Substance: AMIODARONE
     Indication: Atrial fibrillation
     Dosage: 200 MILLIGRAM, ONCE A DAY
     Route: 061
     Dates: start: 20231004, end: 20251120
  2. MIDAZOLAM NEUSSPRAY 2,5MG / Brand name not specified [Concomitant]
     Indication: Product used for unknown indication
     Dosage: 2.5 MILLIGRAM
  3. ROSUVASTATINE TABLET 20MG / Brand name not specified [Concomitant]
     Indication: Product used for unknown indication
     Dosage: 20 MILLIGRAM
     Route: 061
  4. LEVETIRACETAM TABLET FO  500MG / Brand name not specified [Concomitant]
     Indication: Product used for unknown indication
     Dosage: 500 MILLIGRAM
     Route: 061
  5. APIXABAN TABLET 2,5MG / Brand name not specified [Concomitant]
     Indication: Product used for unknown indication
     Dosage: 2.5 MILLIGRAM
     Route: 061
  6. FUROSEMIDE TABLET 40MG / Brand name not specified [Concomitant]
     Indication: Product used for unknown indication
     Dosage: 40 MILLIGRAM
     Route: 061
  7. METOPROLOL TABLET MGA 100MG (SUCCINAAT) / Brand name not specified [Concomitant]
     Indication: Product used for unknown indication
     Dosage: 100 MILLIGRAM
     Route: 061
  8. NIFEDIPINE [Concomitant]
     Active Substance: NIFEDIPINE
     Indication: Product used for unknown indication
     Dosage: 60 MILLIGRAM
     Route: 061
  9. ANAGRELIDE CAPSULE 0,5MG / Brand name not specified [Concomitant]
     Indication: Product used for unknown indication
     Dosage: 0.5 MILLIGRAM
     Route: 061
  10. HYDROXYUREA [Concomitant]
     Active Substance: HYDROXYUREA
     Indication: Product used for unknown indication
     Dosage: 1000 MILLIGRAM
     Route: 061
  11. PANTOPRAZOLE [Concomitant]
     Active Substance: PANTOPRAZOLE
     Indication: Product used for unknown indication
     Dosage: 20 MILLIGRAM
     Route: 061

REACTIONS (1)
  - Thyroiditis [Recovering/Resolving]
